FAERS Safety Report 6815155-9 (Version None)
Quarter: 2010Q3

REPORT INFORMATION
  Report Type: 
  Country: None (occurrence: None)
  Receive Date: 20100702
  Receipt Date: 20100625
  Transmission Date: 20110219
  Serious: Yes (Other)
  Sender: FDA-Public Use
  Company Number: CA-ABBOTT-10P-028-0653648-00

PATIENT
  Sex: Male
  Weight: 75 kg

DRUGS (2)
  1. MAVIK [Suspect]
     Indication: ESSENTIAL HYPERTENSION
     Dosage: 1MG QD
     Route: 048
     Dates: start: 20100408
  2. AMLODIPINE [Concomitant]
     Indication: PRODUCT USED FOR UNKNOWN INDICATION
     Dosage: 5MG QD
     Route: 048

REACTIONS (1)
  - AORTIC ANEURYSM [None]
